FAERS Safety Report 9491406 (Version 2)
Quarter: 2013Q1

REPORT INFORMATION
  Report Type: Not Available
  Country: US (occurrence: US)
  Receive Date: 20120619
  Receipt Date: 20120619
  Transmission Date: 20140127
  Serious: Yes (Hospitalization)
  Sender: FDA-Public Use
  Company Number: US-LUNDBECK-DKLU1059770

PATIENT
  Age: 9 None
  Sex: Male
  Weight: 28.3 kg

DRUGS (6)
  1. CLOBAZAM [Suspect]
     Indication: LENNOX-GASTAUT SYNDROME
     Route: 048
     Dates: start: 20060206
  2. KEPPRA [Concomitant]
     Indication: CONVULSION
     Route: 048
     Dates: start: 20041004
  3. ADDERALL XR [Concomitant]
     Indication: ATTENTION DEFICIT/HYPERACTIVITY DISORDER
     Route: 048
     Dates: start: 2003
  4. RISPERDAL [Concomitant]
     Indication: ATTENTION DEFICIT/HYPERACTIVITY DISORDER
     Route: 048
     Dates: start: 20051108
  5. DEPAKOTE [Concomitant]
     Indication: CONVULSION
     Route: 048
  6. DILANTIN [Concomitant]
     Indication: CONVULSION
     Route: 048
     Dates: start: 20060429

REACTIONS (1)
  - Convulsion [Recovered/Resolved]
